FAERS Safety Report 8439571-7 (Version None)
Quarter: 2012Q2

REPORT INFORMATION
  Report Type: 
  Country: None (occurrence: None)
  Receive Date: 20120615
  Receipt Date: 20120605
  Transmission Date: 20120825
  Serious: Yes (Hospitalization, Other)
  Sender: FDA-Public Use
  Company Number: US-SHIRE-ALL1-2012-02794

PATIENT
  Sex: Female

DRUGS (1)
  1. VPRIV [Suspect]
     Indication: GAUCHER'S DISEASE
     Dosage: 2800 IU, 1X/2WKS(SEVEN 400 U VIALS)
     Route: 041
     Dates: start: 20111017

REACTIONS (8)
  - CHEST PAIN [None]
  - FLUSHING [None]
  - WRONG TECHNIQUE IN DRUG USAGE PROCESS [None]
  - ANXIETY [None]
  - PAIN [None]
  - AIR EMBOLISM [None]
  - INFUSION RELATED REACTION [None]
  - DYSPNOEA [None]
